FAERS Safety Report 9388741 (Version 1)
Quarter: 2013Q3

REPORT INFORMATION
  Report Type: Report from Study
  Country: NZ (occurrence: NZ)
  Receive Date: 20130708
  Receipt Date: 20130708
  Transmission Date: 20140515
  Serious: Yes (Hospitalization)
  Sender: FDA-Public Use
  Company Number: NZ-ABBOTT-13P-118-1115800-00

PATIENT
  Age: 26 Year
  Sex: Female

DRUGS (6)
  1. HUMIRA [Suspect]
     Indication: CROHN^S DISEASE
     Route: 058
     Dates: start: 20090622, end: 20090622
  2. HUMIRA [Suspect]
     Route: 058
     Dates: start: 200906, end: 200906
  3. HUMIRA [Suspect]
     Route: 058
     Dates: start: 200907, end: 20090914
  4. CITALOPRAM [Concomitant]
     Indication: DEPRESSION
     Dates: start: 200412
  5. MICROGYNON [Concomitant]
     Indication: CONTRACEPTION
     Dates: start: 2000
  6. CODEINE PHOSPHATE [Concomitant]
     Indication: PAIN
     Dates: start: 2004

REACTIONS (6)
  - Anal fistula [Unknown]
  - Dermal sinus [Unknown]
  - Anal abscess [Unknown]
  - Anal abscess [Unknown]
  - Stoma site abscess [Unknown]
  - Secretion discharge [Unknown]
